FAERS Safety Report 13738472 (Version 1)
Quarter: 2017Q3

REPORT INFORMATION
  Report Type: Spontaneous
  Country: US (occurrence: US)
  Receive Date: 20170710
  Receipt Date: 20170710
  Transmission Date: 20171127
  Serious: Yes (Other)
  Sender: FDA-Public Use
  Company Number: US-SAOL THERAPEUTICS-2016SAO01298

PATIENT
  Age: 15 Year
  Sex: Female

DRUGS (2)
  1. LIORESAL [Suspect]
     Active Substance: BACLOFEN
     Dosage: 1326 ?G, UNK
     Route: 037
     Dates: end: 20161216
  2. LIORESAL [Suspect]
     Active Substance: BACLOFEN
     Dosage: 300 ?G, UNK
     Route: 037
     Dates: start: 20161216

REACTIONS (2)
  - Therapy non-responder [Recovered/Resolved]
  - Device occlusion [Recovered/Resolved]

NARRATIVE: CASE EVENT DATE: 201605
